FAERS Safety Report 7318344-2 (Version None)
Quarter: 2011Q1

REPORT INFORMATION
  Report Type: 
  Country: None (occurrence: None)
  Receive Date: 20110218
  Receipt Date: 20110218
  Transmission Date: 20110831
  Serious: Yes (Other)
  Sender: FDA-Public Use
  Company Number: None

PATIENT
  Age: 40 Year
  Sex: Female
  Weight: 91.173 kg

DRUGS (12)
  1. ATIVAN [Concomitant]
  2. PHENERGAN [Concomitant]
  3. LEVBID [Concomitant]
  4. PROTONIX [Concomitant]
  5. REGLAN [Concomitant]
  6. VERAPAMIL [Concomitant]
  7. FLEXERIL [Concomitant]
  8. LEVOTHYROXINE [Concomitant]
  9. LIPITOR [Concomitant]
  10. ZOFRAN [Concomitant]
  11. VICODIN [Concomitant]
  12. LAMOTRIGINE [Suspect]
     Indication: CONVULSION
     Dosage: 200MG PO BID ORAL
     Route: 048
     Dates: start: 20110131

REACTIONS (1)
  - CONVULSION [None]
